FAERS Safety Report 8025424-5 (Version None)
Quarter: 2011Q4

REPORT INFORMATION
  Report Type: 
  Country: None (occurrence: None)
  Receive Date: 20111130
  Receipt Date: 20110921
  Transmission Date: 20120403
  Serious: Yes (Other)
  Sender: FDA-Public Use
  Company Number: 2010005101

PATIENT
  Sex: Male

DRUGS (2)
  1. TRISENOX [Suspect]
     Indication: ACUTE PROMYELOCYTIC LEUKAEMIA
     Dosage: 10 MG (10 MG,1 IN 1 D),INTRAVENOUS DRIP ; 5 MG (5 MG,1 IN 1 D),INTRAVENOUS DRIP
     Route: 041
     Dates: start: 20100913, end: 20100924
  2. TRISENOX [Suspect]
     Indication: ACUTE PROMYELOCYTIC LEUKAEMIA
     Dosage: 10 MG (10 MG,1 IN 1 D),INTRAVENOUS DRIP ; 5 MG (5 MG,1 IN 1 D),INTRAVENOUS DRIP
     Route: 041
     Dates: start: 20101004

REACTIONS (2)
  - ABDOMINAL PAIN [None]
  - ALANINE AMINOTRANSFERASE INCREASED [None]
